FAERS Safety Report 8314787-9 (Version None)
Quarter: 2012Q1

REPORT INFORMATION
  Report Type: 
  Country: None (occurrence: None)
  Receive Date: 20120315
  Receipt Date: 20110609
  Transmission Date: 20120608
  Serious: Yes (Other)
  Sender: FDA-Public Use
  Company Number: PHHY2011US47389

PATIENT
  Age: 52 Year
  Sex: Female

DRUGS (6)
  1. GILENYA [Suspect]
     Indication: MULTIPLE SCLEROSIS
     Dosage: 0.5 MG, QD, ORAL
     Route: 048
     Dates: start: 20110505, end: 20110527
  2. ADDERALL 10 [Concomitant]
  3. VITAMIN D [Concomitant]
  4. CELEXA [Concomitant]
  5. VITAMIN B12 [Concomitant]
  6. CALCIUM [Concomitant]

REACTIONS (1)
  - HERPES ZOSTER [None]
